FAERS Safety Report 7979577-5 (Version None)
Quarter: 2011Q4

REPORT INFORMATION
  Report Type: 
  Country: None (occurrence: None)
  Receive Date: 20111204
  Receipt Date: 20111026
  Transmission Date: 20120403
  Serious: No
  Sender: FDA-Public Use
  Company Number: US-ALLERGAN-1114127US

PATIENT
  Age: 32 Year
  Sex: Female

DRUGS (3)
  1. ACZONE [Suspect]
     Indication: ACNE
     Dosage: 1 N/A, QAM
     Route: 061
     Dates: start: 20110623, end: 20111024
  2. ZIANA CREAM [Concomitant]
     Indication: ACNE
     Dosage: 1 N/A, QOD
     Route: 061
     Dates: start: 20110101
  3. DOXYCYCLINE [Concomitant]
     Indication: ACNE
     Dosage: 1 N/A, QD
     Route: 065
     Dates: start: 20110101, end: 20110901

REACTIONS (1)
  - DRUG INEFFECTIVE [None]
